FAERS Safety Report 21981173 (Version 3)
Quarter: 2024Q2

REPORT INFORMATION
  Report Type: Report from Study
  Country: AU (occurrence: AU)
  Receive Date: 20230211
  Receipt Date: 20240528
  Transmission Date: 20240715
  Serious: Yes (Other)
  Sender: FDA-Public Use
  Company Number: AU-ABBVIE-4303439

PATIENT
  Age: 65 Year
  Sex: Female
  Weight: 76 kg

DRUGS (16)
  1. UPADACITINIB [Suspect]
     Active Substance: UPADACITINIB
     Indication: Product used for unknown indication
     Route: 048
     Dates: start: 20220219, end: 20220805
  2. UPADACITINIB [Suspect]
     Active Substance: UPADACITINIB
     Indication: Product used for unknown indication
     Route: 048
     Dates: start: 20220814
  3. CANDESARTAN [Concomitant]
     Active Substance: CANDESARTAN
     Indication: Hypertension
     Route: 048
     Dates: start: 201205
  4. SARS-Cov-2 Vaccine [Concomitant]
     Indication: Product used for unknown indication
     Dates: start: 20220110, end: 20220110
  5. SARS-Cov-2 Vaccine [Concomitant]
     Indication: Product used for unknown indication
     Dates: start: 20220617, end: 20220617
  6. SARS-Cov-2 Vaccine [Concomitant]
     Indication: Product used for unknown indication
     Dates: start: 20210925, end: 20210925
  7. SARS-Cov-2 Vaccine [Concomitant]
     Indication: Product used for unknown indication
     Dates: start: 20210821, end: 20210821
  8. STREPTOCOCCUS PNEUMONIAE [Concomitant]
     Indication: Product used for unknown indication
     Dates: start: 20220209
  9. STREPTOCOCCUS PNEUMONIAE [Concomitant]
     Indication: Product used for unknown indication
     Dates: start: 20220704
  10. TIMOLOL [Concomitant]
     Active Substance: TIMOLOL
     Indication: Glaucoma
     Route: 031
     Dates: start: 202109
  11. BIMATOPROST [Concomitant]
     Active Substance: BIMATOPROST
     Indication: Glaucoma
     Route: 031
     Dates: start: 202109
  12. ISONIAZID [Concomitant]
     Active Substance: ISONIAZID
     Indication: Prophylaxis
     Route: 048
     Dates: start: 20210122, end: 20220721
  13. HYDROXYCHLOROQUINE [Concomitant]
     Active Substance: HYDROXYCHLOROQUINE
     Indication: Product used for unknown indication
     Route: 048
     Dates: start: 20211002, end: 20220220
  14. PYRIDOXINE [Concomitant]
     Active Substance: PYRIDOXINE
     Indication: Prophylaxis
     Route: 048
     Dates: start: 20220122, end: 20220721
  15. ACETAMINOPHEN [Concomitant]
     Active Substance: ACETAMINOPHEN
     Indication: Osteoarthritis
     Route: 048
     Dates: start: 20220225
  16. HYALURONATE SODIUM [Concomitant]
     Active Substance: HYALURONATE SODIUM
     Indication: Glaucoma
     Route: 031
     Dates: start: 201909

REACTIONS (1)
  - Vitreous haemorrhage [Recovered/Resolved]

NARRATIVE: CASE EVENT DATE: 20230106
